FAERS Safety Report 6014978-6 (Version None)
Quarter: 2008Q4

REPORT INFORMATION
  Report Type: 
  Country: None (occurrence: None)
  Receive Date: 20081219
  Receipt Date: 20081208
  Transmission Date: 20090506
  Serious: Yes (Other)
  Sender: FDA-Public Use
  Company Number: DK-JNJCH-2008057364

PATIENT
  Sex: Female

DRUGS (1)
  1. LISTERINE MOUTHWASH [Suspect]
     Indication: DRUG USE FOR UNKNOWN INDICATION
     Dosage: TEXT:UNSPECIFIED
     Route: 048

REACTIONS (1)
  - SWOLLEN TONGUE [None]
